FAERS Safety Report 9853479 (Version 1)
Quarter: 2014Q1

REPORT INFORMATION
  Report Type: Spontaneous
  Country: IN (occurrence: IN)
  Receive Date: 20140129
  Receipt Date: 20140129
  Transmission Date: 20141002
  Serious: Yes (Hospitalization, Other)
  Sender: FDA-Public Use
  Company Number: IN-WATSON-2014-00777

PATIENT
  Age: 58 Year
  Sex: Male

DRUGS (9)
  1. AMLODIPINE (UNKNOWN) [Suspect]
     Indication: BLOOD PRESSURE MANAGEMENT
     Dosage: 5 MG, DAILY
     Route: 048
  2. GLYCOPYRROLATE                     /00196201/ [Concomitant]
     Indication: ANAESTHETIC PREMEDICATION
     Dosage: 0.2 MG, SINGLE
     Route: 042
  3. RANITIDINE [Concomitant]
     Indication: PREMEDICATION
     Dosage: 50 MG, SINGLE
     Route: 042
  4. ONDANSETRON [Concomitant]
     Indication: PREMEDICATION
     Dosage: 4 MG, UNKNOWN
     Route: 042
  5. FENTANYL [Concomitant]
     Indication: ANAESTHETIC PREMEDICATION
     Dosage: 3 MICROGRAMS/KG
     Route: 042
  6. THIOPENTONE SODIUM [Concomitant]
     Indication: INDUCTION OF ANAESTHESIA
     Dosage: 4 MG/KG, SINGLE
     Route: 065
  7. SUCCINYLCHOLINE [Concomitant]
     Indication: INDUCTION OF ANAESTHESIA
     Dosage: 2 MG/KG, SINGLE
     Route: 065
  8. ISOFLURANE [Concomitant]
     Indication: MAINTENANCE OF ANAESTHESIA
     Dosage: UNK
     Route: 065
  9. ATRACURIUM [Concomitant]
     Indication: MAINTENANCE OF ANAESTHESIA
     Dosage: UNK
     Route: 065

REACTIONS (3)
  - Procedural hypotension [Recovered/Resolved]
  - Metabolic acidosis [Recovered/Resolved]
  - Renal ischaemia [Recovered/Resolved]
